FAERS Safety Report 6992858-7 (Version None)
Quarter: 2010Q3

REPORT INFORMATION
  Report Type: 
  Country: None (occurrence: None)
  Receive Date: 20100917
  Receipt Date: 20100723
  Transmission Date: 20110219
  Serious: Yes (Hospitalization)
  Sender: FDA-Public Use
  Company Number: B0665005A

PATIENT
  Age: 59 Year
  Sex: Male

DRUGS (15)
  1. ARTIST [Suspect]
     Indication: CARDIAC FAILURE CHRONIC
     Dosage: 5MG PER DAY
     Route: 048
     Dates: start: 20071120
  2. LIPITOR [Concomitant]
     Route: 065
  3. WARFARIN SODIUM [Concomitant]
     Route: 065
     Dates: start: 20071120
  4. ASPIRIN [Concomitant]
     Route: 065
     Dates: start: 20071120
  5. DIOVAN [Concomitant]
     Route: 065
     Dates: start: 20071120, end: 20100629
  6. LASIX [Concomitant]
     Route: 065
     Dates: start: 20071020
  7. ZYLORIC [Concomitant]
     Dates: start: 20071120, end: 20100629
  8. GASTER D [Concomitant]
     Dates: start: 20071120, end: 20100629
  9. FLUITRAN [Concomitant]
     Dates: start: 20071120
  10. ALDACTONE [Concomitant]
     Dates: start: 20071120
  11. MAGNESIUM OXIDE [Concomitant]
  12. METHYCOBAL [Concomitant]
  13. FRANDOL [Concomitant]
     Dates: start: 20071120
  14. MYSLEE [Concomitant]
     Dates: start: 20071120, end: 20100629
  15. DEPAS [Concomitant]
     Dates: start: 20071120, end: 20100629

REACTIONS (3)
  - HYPOTENSION [None]
  - OEDEMA [None]
  - OLIGURIA [None]
